FAERS Safety Report 4637891-5 (Version None)
Quarter: 2005Q2

REPORT INFORMATION
  Report Type: 
  Country: None (occurrence: None)
  Receive Date: 20050328
  Receipt Date: 20050126
  Transmission Date: 20051028
  Serious: No
  Sender: FDA-Public Use
  Company Number: US_0502112369

PATIENT
  Sex: Female

DRUGS (4)
  1. STRATTERA [Suspect]
     Indication: ATTENTION DEFICIT/HYPERACTIVITY DISORDER
     Dosage: 36 MG DAY
  2. SAM-E (ADEMETIONINE) [Concomitant]
  3. TRAZODONE HCL [Concomitant]
  4. MULTIVITAMIN NOS (MULTIVITAMIN NOS) [Concomitant]

REACTIONS (1)
  - EPISTAXIS [None]
